FAERS Safety Report 5006178-3 (Version None)
Quarter: 2006Q1

REPORT INFORMATION
  Report Type: 
  Country: None (occurrence: None)
  Receive Date: 20060327
  Receipt Date: 20051215
  Transmission Date: 20060701
  Serious: No
  Sender: FDA-Public Use
  Company Number: 219485

PATIENT
  Age: 51 Year
  Sex: Female
  Weight: 105 kg

DRUGS (2)
  1. AVASTIN [Suspect]
     Indication: BREAST CANCER METASTATIC
     Dosage: 1000 MG, Q3W, INTRAVENOUS
     Route: 042
     Dates: start: 20050920
  2. ABRAXANE (PACLITAXEL) [Concomitant]

REACTIONS (1)
  - ACNE [None]
